FAERS Safety Report 6464998-2 (Version None)
Quarter: 2009Q4

REPORT INFORMATION
  Report Type: 
  Country: None (occurrence: None)
  Receive Date: 20091201
  Receipt Date: 20091124
  Transmission Date: 20100525
  Serious: Yes (Hospitalization, Other)
  Sender: FDA-Public Use
  Company Number: CH-SANOFI-AVENTIS-D01200809000

PATIENT
  Age: 69 Year
  Sex: Male
  Weight: 82 kg

DRUGS (10)
  1. CLOPIDOGREL BISULFATE [Suspect]
     Indication: ACUTE CORONARY SYNDROME
     Dosage: DOSE TEXT: 600 MG LD D1 FOLLOWED BY 150 MG FROM D2 TO D7; 75 MG FROM D8 TO 30UNIT DOSE: 75 MG
     Route: 048
     Dates: start: 20081128
  2. CLOPIDOGREL BISULFATE [Suspect]
     Dosage: DOSE TEXT: 600 MG LD D1 FOLLOWED BY 150 MG FROM D2 TO D7; 75 MG FROM D8 TO 30UNIT DOSE: 75 MG
     Route: 048
     Dates: start: 20081205, end: 20081223
  3. ASPIRIN [Concomitant]
     Indication: ACUTE CORONARY SYNDROME
     Dosage: DOSE TEXT: AT LEAST 300 MG D1; 75-100 MG FROM D2 TO D30
     Route: 048
     Dates: start: 20081128
  4. ASPIRIN [Concomitant]
     Dosage: DOSE TEXT: AT LEAST 300 MG D1; 75-100 MG FROM D2 TO D30
     Route: 048
     Dates: start: 20081211, end: 20081225
  5. PANTOZOL [Concomitant]
  6. ATORVASTATIN CALCIUM [Concomitant]
     Route: 065
  7. BELOC ZOK [Concomitant]
     Route: 065
  8. HEPARIN [Concomitant]
  9. INTEGRILIN [Concomitant]
  10. DAFALGAN [Concomitant]

REACTIONS (2)
  - COLON CANCER [None]
  - GASTROINTESTINAL HAEMORRHAGE [None]
